FAERS Safety Report 5619306-3 (Version None)
Quarter: 2008Q1

REPORT INFORMATION
  Report Type: 
  Country: None (occurrence: None)
  Receive Date: 20080206
  Receipt Date: 20080129
  Transmission Date: 20080703
  Serious: Yes (Hospitalization, Other)
  Sender: FDA-Public Use
  Company Number: 18275

PATIENT
  Age: 59 Year
  Sex: Female

DRUGS (4)
  1. VINCRISTINE [Suspect]
     Indication: T-CELL LYMPHOMA
  2. CYCLOPHOSPHAMIDE [Suspect]
     Indication: T-CELL LYMPHOMA
  3. DEXAMETHASONE TAB [Suspect]
     Indication: T-CELL LYMPHOMA
  4. DOXORUBICIN HCL [Suspect]
     Indication: T-CELL LYMPHOMA

REACTIONS (3)
  - FATIGUE [None]
  - FEBRILE NEUTROPENIA [None]
  - SEPSIS [None]
